FAERS Safety Report 4325154-7 (Version None)
Quarter: 2004Q1

REPORT INFORMATION
  Report Type: 
  Country: None (occurrence: None)
  Receive Date: 20040324
  Receipt Date: 20040310
  Transmission Date: 20041129
  Serious: Yes (Death, Hospitalization)
  Sender: FDA-Public Use
  Company Number: F01200400510

PATIENT
  Age: 69 Year
  Sex: Male

DRUGS (6)
  1. OXALIPLATIN [Suspect]
     Indication: COLORECTAL CANCER METASTATIC
     Dosage: 260 MG Q3W
     Route: 042
     Dates: start: 20030904, end: 20030904
  2. RALTITREXED) - SOLUTION - 6 MG [Suspect]
     Dosage: 6 MG, Q3W
     Route: 042
     Dates: start: 20030904, end: 20030904
  3. LACIDIPIN (LACIDIPINE) [Concomitant]
  4. PREDNISONE [Concomitant]
  5. OMEPRAZOLE [Concomitant]
  6. POTASSIUM (POTASSIUM ASCORBATE) [Concomitant]

REACTIONS (8)
  - CONSTIPATION [None]
  - GOITRE [None]
  - INTESTINAL OBSTRUCTION [None]
  - LIVER FUNCTION TEST ABNORMAL [None]
  - METASTASES TO LIVER [None]
  - NEUTROPENIA [None]
  - PNEUMOPERITONEUM [None]
  - PULMONARY FUNCTION TEST ABNORMAL [None]
